FAERS Safety Report 23590709 (Version 1)
Quarter: 2024Q1

REPORT INFORMATION
  Report Type: Spontaneous
  Country: FR (occurrence: FR)
  Receive Date: 20240304
  Receipt Date: 20240304
  Transmission Date: 20240409
  Serious: Yes (Hospitalization)
  Sender: FDA-Public Use
  Company Number: None

PATIENT
  Age: 15 Year
  Sex: Female
  Weight: 53.5 kg

DRUGS (1)
  1. ACETAMINOPHEN [Suspect]
     Active Substance: ACETAMINOPHEN
     Indication: Toxicity to various agents
     Dosage: 10.000G
     Route: 048
     Dates: start: 20240117, end: 20240117

REACTIONS (5)
  - Vomiting [Recovering/Resolving]
  - Abdominal pain [Recovered/Resolved]
  - Prothrombin time shortened [Recovering/Resolving]
  - Toxicity to various agents [Recovering/Resolving]
  - Hepatic cytolysis [Recovering/Resolving]

NARRATIVE: CASE EVENT DATE: 20240117
